FAERS Safety Report 20044886 (Version 1)
Quarter: 2021Q4

REPORT INFORMATION
  Report Type: Spontaneous
  Country: IR (occurrence: IR)
  Receive Date: 20211108
  Receipt Date: 20211108
  Transmission Date: 20220303
  Serious: Yes (Hospitalization)
  Sender: FDA-Public Use
  Company Number: IR-GILEAD-2021-0555086

PATIENT
  Age: 13 Year
  Sex: Male

DRUGS (17)
  1. REMDESIVIR [Suspect]
     Active Substance: REMDESIVIR
     Indication: COVID-19
     Dosage: 2 DOSES
     Route: 065
  2. METHYLPREDNISOLONE [Concomitant]
     Active Substance: METHYLPREDNISOLONE
     Indication: COVID-19
     Dosage: 2 DOSES
  3. FAVIPIRAVIR [Concomitant]
     Active Substance: FAVIPIRAVIR
  4. OXYGEN [Concomitant]
     Active Substance: OXYGEN
  5. VANCOMYCIN [Concomitant]
     Active Substance: VANCOMYCIN
  6. PIPERACILLIN [Concomitant]
     Active Substance: PIPERACILLIN
  7. TAZOBACTAM [Concomitant]
     Active Substance: TAZOBACTAM
  8. ASPIRIN [Concomitant]
     Active Substance: ASPIRIN
  9. FAMOTIDINE [Concomitant]
     Active Substance: FAMOTIDINE
  10. ZINC [Concomitant]
     Active Substance: ZINC
  11. VITAMIN C [Concomitant]
     Active Substance: ASCORBIC ACID
  12. COLISTIN [Concomitant]
     Active Substance: COLISTIN
  13. TEICOPLANIN [Concomitant]
     Active Substance: TEICOPLANIN
  14. CASPOFUNGIN [Concomitant]
     Active Substance: CASPOFUNGIN
  15. ATROPINE [Concomitant]
     Active Substance: ATROPINE
  16. INTERFERON GAMMA [Concomitant]
     Active Substance: INTERFERON GAMMA
  17. OSELTAMIVIR [Concomitant]
     Active Substance: OSELTAMIVIR

REACTIONS (1)
  - Bradycardia [Unknown]
